FAERS Safety Report 23189293 (Version 1)
Quarter: 2023Q4

REPORT INFORMATION
  Report Type: Spontaneous
  Country: FR (occurrence: FR)
  Receive Date: 20231115
  Receipt Date: 20231115
  Transmission Date: 20240109
  Serious: Yes (Other)
  Sender: FDA-Public Use
  Company Number: FR-STERISCIENCE B.V.-2023-ST-002171

PATIENT

DRUGS (7)
  1. BUPIVACAINE [Suspect]
     Active Substance: BUPIVACAINE
     Indication: Product used for unknown indication
     Dosage: THE PATIENT^S MOTHER DOSE WAS AT 12:07 PM, SPINAL
     Route: 064
  2. SUFENTANIL CITRATE [Suspect]
     Active Substance: SUFENTANIL CITRATE
     Indication: Product used for unknown indication
     Dosage: THE PATIENT^S MOTHER DOSE WAS AT 12:07 PM, SPINAL
     Route: 064
  3. MORPHINE HYDROCHLORIDE [Suspect]
     Active Substance: MORPHINE HYDROCHLORIDE
     Indication: Product used for unknown indication
     Dosage: THE PATIENT^S MOTHER DOSE WAS AT 12:07 PM, SPINAL
     Route: 064
  4. ROPIVACAINE [Suspect]
     Active Substance: ROPIVACAINE
     Indication: Product used for unknown indication
     Dosage: THE PATIENT^S MOTHER DOSE WAS 12.46 PM, SPINAL
     Route: 064
  5. EPHEDRINE [Suspect]
     Active Substance: EPHEDRINE
     Indication: Product used for unknown indication
     Dosage: THE PATIENT^S MOTHER DOSE WAS 12:07 PM, SPINAL
     Route: 064
  6. CEFUROXIME [Suspect]
     Active Substance: CEFUROXIME
     Indication: Product used for unknown indication
     Dosage: THE PATIENT^S MOTHER DOSE WAS AT 12:19 PM
     Route: 064
  7. OXYTOCIN [Suspect]
     Active Substance: OXYTOCIN
     Indication: Product used for unknown indication
     Dosage: THE PATIENT^S MOTHER DOSE WAS AT 12:25 PM
     Route: 064

REACTIONS (2)
  - Premature baby [Unknown]
  - Foetal exposure during pregnancy [Unknown]
